FAERS Safety Report 19086631 (Version 2)
Quarter: 2021Q2

REPORT INFORMATION
  Report Type: Spontaneous
  Country: US (occurrence: US)
  Receive Date: 20210402
  Receipt Date: 20210402
  Transmission Date: 20210717
  Serious: Yes (Hospitalization, Other)
  Sender: FDA-Public Use
  Company Number: US-PFIZER INC-2021307411

PATIENT
  Age: 9 Month
  Sex: Female

DRUGS (6)
  1. TACROLIMUS. [Interacting]
     Active Substance: TACROLIMUS
     Dosage: 1.4 MG, 2X/DAY(INCREASE)
  2. TACROLIMUS. [Interacting]
     Active Substance: TACROLIMUS
     Indication: PROPHYLAXIS AGAINST GRAFT VERSUS HOST DISEASE
     Dosage: 1.2 MG, 2X/DAY(INCREASE)
  3. VORICONAZOLE. [Interacting]
     Active Substance: VORICONAZOLE
     Indication: PULMONARY MASS
  4. TACROLIMUS. [Interacting]
     Active Substance: TACROLIMUS
     Dosage: 2 MG, 2X/DAY(INCREASE)
  5. VORICONAZOLE. [Suspect]
     Active Substance: VORICONAZOLE
     Indication: ANTIFUNGAL TREATMENT
     Dosage: UNK
  6. VORICONAZOLE. [Interacting]
     Active Substance: VORICONAZOLE
     Indication: PYREXIA

REACTIONS (3)
  - Toxicity to various agents [Recovered/Resolved]
  - Drug interaction [Recovered/Resolved]
  - Immunosuppressant drug level increased [Recovered/Resolved]
